FAERS Safety Report 13124871 (Version 3)
Quarter: 2017Q2

REPORT INFORMATION
  Report Type: Spontaneous
  Country: FR (occurrence: FR)
  Receive Date: 20170118
  Receipt Date: 20170522
  Transmission Date: 20170830
  Serious: Yes (Other)
  Sender: FDA-Public Use
  Company Number: FR-MUNDIPHARMA DS AND PHARMACOVIGILANCE-GBR-2017-0042786

PATIENT
  Age: 65 Year
  Sex: Female

DRUGS (16)
  1. CEFEPIME [Suspect]
     Active Substance: CEFEPIME HYDROCHLORIDE
     Indication: DEVICE RELATED INFECTION
     Dosage: 2 G, Q12H (2G STRENGTH)
     Route: 041
     Dates: start: 20161205, end: 20161209
  2. CORDARONE [Concomitant]
     Active Substance: AMIODARONE HYDROCHLORIDE
  3. LASILIX                            /00032601/ [Concomitant]
     Active Substance: FUROSEMIDE
  4. OXYCONTIN [Suspect]
     Active Substance: OXYCODONE HYDROCHLORIDE
     Indication: PRODUCT USED FOR UNKNOWN INDICATION
     Dosage: UNK
     Route: 048
     Dates: end: 20161211
  5. LYRICA [Suspect]
     Active Substance: PREGABALIN
     Indication: PRODUCT USED FOR UNKNOWN INDICATION
     Dosage: 75 MG, BID
     Route: 048
     Dates: start: 2016, end: 20161213
  6. GENTAMICINE [Suspect]
     Active Substance: GENTAMICIN
     Indication: DEVICE RELATED INFECTION
     Dosage: 640 MG, TOTAL
     Route: 042
     Dates: start: 20161205, end: 20161205
  7. VANCOMYCINE [Suspect]
     Active Substance: VANCOMYCIN
     Indication: DEVICE RELATED INFECTION
     Dosage: 2 MG, Q1H (500MG STRENGTH)
     Route: 041
     Dates: start: 20161205, end: 20161209
  8. KARDEGIC [Concomitant]
     Active Substance: ASPIRIN LYSINE
  9. ZYMAD [Concomitant]
     Active Substance: CHOLECALCIFEROL
  10. BISOPROL [Concomitant]
  11. LEVOTHYROX [Concomitant]
     Active Substance: LEVOTHYROXINE
  12. IKOREL [Concomitant]
     Active Substance: NICORANDIL
  13. PANTOPRAZOLE [Concomitant]
     Active Substance: PANTOPRAZOLE
  14. TAHOR [Suspect]
     Active Substance: ATORVASTATIN CALCIUM
     Indication: PRODUCT USED FOR UNKNOWN INDICATION
     Dosage: UNK
     Route: 048
     Dates: end: 20161212
  15. DAFALGAN [Concomitant]
     Active Substance: ACETAMINOPHEN
  16. NOVORAPID [Concomitant]
     Active Substance: INSULIN ASPART

REACTIONS (3)
  - Myoclonus [Recovered/Resolved]
  - Acute kidney injury [Recovering/Resolving]
  - Encephalopathy [Recovered/Resolved]

NARRATIVE: CASE EVENT DATE: 201612
